FAERS Safety Report 8987852 (Version 2)
Quarter: 2013Q1

REPORT INFORMATION
  Report Type: Spontaneous
  Country: CA (occurrence: CA)
  Receive Date: 20121227
  Receipt Date: 20130301
  Transmission Date: 20140127
  Serious: Yes (Other)
  Sender: FDA-Public Use
  Company Number: CA-GLAXOSMITHKLINE-A1006291A

PATIENT
  Sex: Male

DRUGS (5)
  1. VOTRIENT [Suspect]
     Indication: RENAL CANCER METASTATIC
     Dosage: 200MG PER DAY
     Route: 048
     Dates: start: 20110510
  2. LEVOTHYROXINE [Concomitant]
  3. TESTOSTERONE [Concomitant]
  4. PREDNISONE [Concomitant]
  5. ANTI-HYPERTENSIVE [Concomitant]

REACTIONS (3)
  - Pituitary tumour [Not Recovered/Not Resolved]
  - Malignant neoplasm progression [Not Recovered/Not Resolved]
  - Drug ineffective [Unknown]
